FAERS Safety Report 25045159 (Version 3)
Quarter: 2025Q3

REPORT INFORMATION
  Report Type: Spontaneous
  Country: JP (occurrence: JP)
  Receive Date: 20250306
  Receipt Date: 20250803
  Transmission Date: 20251021
  Serious: Yes (Hospitalization, Other)
  Sender: ALEXION PHARMACEUTICALS
  Company Number: JP-ASTRAZENECA-250019941_032620_P_1

PATIENT
  Age: 61 Year
  Sex: Male

DRUGS (15)
  1. FASENRA [Suspect]
     Active Substance: BENRALIZUMAB
     Indication: Eosinophilic granulomatosis with polyangiitis
     Dosage: 30 MILLIGRAM, Q4W
     Dates: start: 20250131, end: 20250131
  2. PREDONINE [Suspect]
     Active Substance: PREDNISOLONE
     Route: 065
  3. CYCLOPHOSPHAMIDE [Concomitant]
     Active Substance: CYCLOPHOSPHAMIDE
     Route: 065
  4. BILASTINE [Concomitant]
     Active Substance: BILASTINE
     Route: 065
  5. EDOXABAN TOSYLATE [Concomitant]
     Active Substance: EDOXABAN TOSYLATE
     Route: 065
  6. DOTINURAD [Concomitant]
     Active Substance: DOTINURAD
     Route: 065
  7. MONTELUKAST [Concomitant]
     Active Substance: MONTELUKAST
     Route: 065
  8. ESOMEPRAZOLE [Concomitant]
     Active Substance: ESOMEPRAZOLE
     Route: 065
  9. ALFACALCIDOL [Concomitant]
     Active Substance: ALFACALCIDOL
     Route: 065
  10. MIROGABALIN BESYLATE [Concomitant]
     Active Substance: MIROGABALIN BESYLATE
     Route: 065
  11. RAMELTEON [Concomitant]
     Active Substance: RAMELTEON
     Route: 065
  12. DAYVIGO [Concomitant]
     Active Substance: LEMBOREXANT
     Route: 065
  13. ALENDRONATE [Concomitant]
     Active Substance: ALENDRONATE SODIUM
     Route: 065
  14. ATOVAQUONE [Concomitant]
     Active Substance: ATOVAQUONE
     Route: 065
  15. AZOSEMIDE [Concomitant]
     Active Substance: AZOSEMIDE
     Route: 065

REACTIONS (1)
  - Large intestine perforation [Recovered/Resolved]

NARRATIVE: CASE EVENT DATE: 20250201
